FAERS Safety Report 21482669 (Version 1)
Quarter: 2022Q4

REPORT INFORMATION
  Report Type: Spontaneous
  Country: DE (occurrence: DE)
  Receive Date: 20221020
  Receipt Date: 20221020
  Transmission Date: 20230113
  Serious: Yes (Other)
  Sender: FDA-Public Use
  Company Number: DE-NOVARTISPH-NVSC2022DE232712

PATIENT
  Age: 32 Year
  Sex: Female
  Weight: 85 kg

DRUGS (5)
  1. AMLODIPINE BESYLATE\HYDROCHLOROTHIAZIDE\VALSARTAN [Suspect]
     Active Substance: AMLODIPINE BESYLATE\HYDROCHLOROTHIAZIDE\VALSARTAN
     Indication: Accidental exposure to product
     Dosage: UNK, (CONFUSION WITH OTHER DRUG), (6. - 23. GESTATIONAL WEEK)
     Route: 048
  2. AMLODIPINE BESYLATE\HYDROCHLOROTHIAZIDE\VALSARTAN [Suspect]
     Active Substance: AMLODIPINE BESYLATE\HYDROCHLOROTHIAZIDE\VALSARTAN
     Dosage: 5 (MG/D) / 160 (MG/D) / 12.5 (MG/D) (0. - 6. GESTATIONAL WEEK)
     Route: 048
  3. XIPAMIDE [Concomitant]
     Active Substance: XIPAMIDE
     Indication: Hypertension
     Dosage: 10 MG, QD (10 [MG/D] (0. - 22.3. GESTATIONAL WEEK)
     Route: 048
     Dates: start: 20200731, end: 20210104
  4. METOPROLOL [Concomitant]
     Active Substance: METOPROLOL
     Indication: Hypertension
     Dosage: 95 MG, QD (95 [MG/D] 2 SEPARATED DOSES (0. - 29.4. GESTATIONAL WEEK)
     Route: 048
     Dates: start: 20200731, end: 20210223
  5. METHYLDOPA [Concomitant]
     Active Substance: METHYLDOPA
     Indication: Hypertension
     Dosage: 500 MG, QD (500 [MG/D (2X250)] (34.4. - 36.6. GESTATIONAL WEEK)
     Route: 048
     Dates: start: 20210330, end: 20210415

REACTIONS (3)
  - Oligohydramnios [Recovered/Resolved]
  - Product confusion [Unknown]
  - Maternal exposure during pregnancy [Unknown]
